FAERS Safety Report 6338553-9 (Version None)
Quarter: 2009Q3

REPORT INFORMATION
  Report Type: 
  Country: None (occurrence: None)
  Receive Date: 20090901
  Receipt Date: 20090820
  Transmission Date: 20100115
  Serious: Yes (Disabling)
  Sender: FDA-Public Use
  Company Number: ADR16982009

PATIENT
  Age: 50 Year
  Sex: Female

DRUGS (3)
  1. ALENDRONIC ACID (MFR: UNKNOWN) [Suspect]
     Dosage: 70MG (1/1WEEK), ORAL
     Route: 048
     Dates: start: 20070605, end: 20080826
  2. PAROXETINE HCL [Concomitant]
  3. PROCYCLIDINE HYDROCHLORIDE 2MG TAB [Concomitant]

REACTIONS (2)
  - BONE ABSCESS [None]
  - OSTEONECROSIS [None]
